FAERS Safety Report 14434891 (Version 1)
Quarter: 2018Q1

REPORT INFORMATION
  Report Type: Spontaneous
  Country: FR (occurrence: FR)
  Receive Date: 20180125
  Receipt Date: 20180125
  Transmission Date: 20180509
  Serious: Yes (Death)
  Sender: FDA-Public Use
  Company Number: FR-SUN PHARMACEUTICAL INDUSTRIES LTD-2018R1-161160

PATIENT
  Age: 85 Year
  Sex: Female
  Weight: 100 kg

DRUGS (5)
  1. CEFEPIME MYLAN 2 G, POUDRE POUR SOLUTION INJECTABLE [Suspect]
     Active Substance: CEFEPIME HYDROCHLORIDE
     Indication: DEVICE RELATED INFECTION
     Dosage: 3 G, DAILY
     Route: 041
     Dates: start: 20170724, end: 20170731
  2. PIPERACILLINE PANPHARMA [Suspect]
     Active Substance: PIPERACILLIN SODIUM
     Indication: DEVICE RELATED INFECTION
     Dosage: 8 G, DAILY
     Route: 041
     Dates: start: 20170804, end: 20170821
  3. RIFADINE 300 MG, GELULE [Suspect]
     Active Substance: RIFAMPIN
     Indication: DEVICE RELATED INFECTION
     Dosage: UNK
     Route: 048
     Dates: start: 20170728, end: 20170821
  4. LANSOPRAZOLE. [Suspect]
     Active Substance: LANSOPRAZOLE
     Indication: GASTROOESOPHAGEAL REFLUX DISEASE
     Dosage: 30 MG, DAILY
     Route: 048
     Dates: end: 20170821
  5. DALACINE [Suspect]
     Active Substance: CLINDAMYCIN HYDROCHLORIDE
     Indication: DEVICE RELATED INFECTION
     Dosage: 1800 MG, DAILY
     Route: 048
     Dates: start: 20170728, end: 20170821

REACTIONS (3)
  - Pruritus [Fatal]
  - Eosinophilia [Fatal]
  - Rash [Fatal]

NARRATIVE: CASE EVENT DATE: 20170817
